FAERS Safety Report 20149130 (Version 1)
Quarter: 2021Q4

REPORT INFORMATION
  Report Type: Other
  Country: CA (occurrence: CA)
  Receive Date: 20211204
  Receipt Date: 20211204
  Transmission Date: 20220303
  Serious: Yes (Life-Threatening, Hospitalization, Other)
  Sender: FDA-Public Use
  Company Number: CA-APOTEX-2021AP045808

PATIENT
  Age: 76 Year
  Sex: Male

DRUGS (1)
  1. ROSUVASTATIN [Suspect]
     Active Substance: ROSUVASTATIN
     Indication: Cardiovascular event prophylaxis
     Dosage: 40.0 MILLIGRAM, QD
     Route: 048

REACTIONS (5)
  - Gait inability [Unknown]
  - Dialysis [Unknown]
  - Muscular weakness [Unknown]
  - Acute kidney injury [Unknown]
  - Rhabdomyolysis [Unknown]
